APPROVED DRUG PRODUCT: UNIPRES
Active Ingredient: HYDRALAZINE HYDROCHLORIDE; HYDROCHLOROTHIAZIDE; RESERPINE
Strength: 25MG;15MG;0.1MG
Dosage Form/Route: TABLET;ORAL
Application: A085893 | Product #001
Applicant: SOLVAY PHARMACEUTICALS
Approved: Approved Prior to Jan 1, 1982 | RLD: No | RS: No | Type: DISCN